FAERS Safety Report 18505495 (Version 1)
Quarter: 2020Q4

REPORT INFORMATION
  Report Type: Spontaneous
  Country: US (occurrence: US)
  Receive Date: 20201116
  Receipt Date: 20201116
  Transmission Date: 20210114
  Serious: No
  Sender: FDA-Public Use
  Company Number: US-TEVA-2020-US-1848368

PATIENT
  Sex: Female

DRUGS (9)
  1. COPAXONE [Suspect]
     Active Substance: GLATIRAMER ACETATE
     Dosage: FORM STRENGTH: UNKNOWN
     Route: 065
     Dates: start: 2016
  2. LINZESS [Concomitant]
     Active Substance: LINACLOTIDE
  3. VYVANSE [Concomitant]
     Active Substance: LISDEXAMFETAMINE DIMESYLATE
  4. MIRABEGRON [Concomitant]
     Active Substance: MIRABEGRON
  5. PROVIGIL [Suspect]
     Active Substance: MODAFINIL
     Route: 065
  6. CHOLECALCIFEROL [Concomitant]
     Active Substance: CHOLECALCIFEROL
  7. OCREVUS [Concomitant]
     Active Substance: OCRELIZUMAB
  8. ASPIRIN. [Concomitant]
     Active Substance: ASPIRIN
  9. VALTREX [Concomitant]
     Active Substance: VALACYCLOVIR HYDROCHLORIDE

REACTIONS (2)
  - Bruxism [Unknown]
  - Hypersensitivity [Unknown]
